FAERS Safety Report 9261569 (Version 2)
Quarter: 2013Q3

REPORT INFORMATION
  Report Type: Report from Study
  Country: FR (occurrence: FR)
  Receive Date: 20130429
  Receipt Date: 20130710
  Transmission Date: 20140515
  Serious: Yes (Hospitalization, Other)
  Sender: FDA-Public Use
  Company Number: FR-AMGEN-FRACT2013029153

PATIENT
  Age: 61 Year
  Sex: Female

DRUGS (3)
  1. ETANERCEPT [Suspect]
     Indication: RHEUMATOID ARTHRITIS
     Dosage: 50 MG, QWK
     Route: 065
     Dates: start: 200607, end: 200705
  2. ETANERCEPT [Suspect]
     Dosage: 50 MG, QWK
     Route: 065
     Dates: start: 200706, end: 200811
  3. METHOTREXATE [Concomitant]
     Dosage: 20 MG
     Dates: start: 200503, end: 200607

REACTIONS (3)
  - Pseudarthrosis [Recovered/Resolved]
  - Osteomyelitis [Recovered/Resolved]
  - Bronchopneumonia [Recovered/Resolved]
